FAERS Safety Report 20233876 (Version 6)
Quarter: 2022Q2

REPORT INFORMATION
  Report Type: Spontaneous
  Country: US (occurrence: US)
  Receive Date: 20211227
  Receipt Date: 20220531
  Transmission Date: 20220721
  Serious: Yes (Hospitalization, Other)
  Sender: FDA-Public Use
  Company Number: US-SANOFI-00902881

PATIENT
  Age: 30 Year
  Sex: Female

DRUGS (10)
  1. CAMPATH [Suspect]
     Active Substance: ALEMTUZUMAB
     Indication: Immunosuppression
     Dosage: 30 MG ONE TIME DOSE ADMINISTERED TWICE
     Route: 042
     Dates: start: 20200701, end: 20200701
  2. CAMPATH [Suspect]
     Active Substance: ALEMTUZUMAB
     Indication: Solid organ transplant rejection
     Dosage: 30 MG, 1X
     Route: 042
     Dates: start: 202102, end: 202102
  3. TACROLIMUS [Concomitant]
     Active Substance: TACROLIMUS
     Indication: Immunosuppression
     Dosage: 3 MG, BID
     Route: 048
     Dates: start: 20200701
  4. TACROLIMUS [Concomitant]
     Active Substance: TACROLIMUS
     Dosage: UNK
  5. MYCOPHENOLATE MOFETIL [Concomitant]
     Active Substance: MYCOPHENOLATE MOFETIL
     Indication: Immunosuppression
     Dosage: 500 MG, BID
     Route: 048
     Dates: start: 20200701
  6. CELLCEPT [Concomitant]
     Active Substance: MYCOPHENOLATE MOFETIL
     Indication: Immunosuppression
  7. PREDNISONE [Concomitant]
     Active Substance: PREDNISONE
     Indication: Immunosuppression
     Dosage: 5 MG, QD
     Dates: start: 20200701
  8. NIFEDIPINE [Concomitant]
     Active Substance: NIFEDIPINE
     Indication: Hypertension
     Dosage: 30 MG, QD
  9. COREG [Concomitant]
     Active Substance: CARVEDILOL
     Indication: Hypertension
     Dosage: 6.25 MG, BID
  10. METHYLPREDNISOLONE [Concomitant]
     Active Substance: METHYLPREDNISOLONE

REACTIONS (14)
  - Kidney transplant rejection [Unknown]
  - Nausea [Unknown]
  - Vomiting [Unknown]
  - Diarrhoea [Unknown]
  - Dyspnoea [Unknown]
  - Blood creatinine increased [Unknown]
  - Hyperkalaemia [Unknown]
  - Acute kidney injury [Unknown]
  - Metabolic acidosis [Unknown]
  - End stage renal disease [Not Recovered/Not Resolved]
  - Transplant failure [Not Recovered/Not Resolved]
  - Haemoglobin decreased [Not Recovered/Not Resolved]
  - Haemodialysis [Unknown]
  - Off label use [Unknown]

NARRATIVE: CASE EVENT DATE: 20200701
